FAERS Safety Report 8866243 (Version 7)
Quarter: 2014Q1

REPORT INFORMATION
  Report Type: Report from Study
  Country: FR (occurrence: FR)
  Receive Date: 20121025
  Receipt Date: 20140227
  Transmission Date: 20141002
  Serious: Yes (Hospitalization, Other)
  Sender: FDA-Public Use
  Company Number: FR-ROCHE-1146306

PATIENT
  Age: 41 Year
  Sex: Female
  Weight: 49 kg

DRUGS (21)
  1. PERTUZUMAB [Suspect]
     Indication: BREAST CANCER
     Dosage: DATE OF LAST DOSE PRIOR TO SAE- 03/OCT/2012
     Route: 042
     Dates: start: 20121003
  2. TRASTUZUMAB [Suspect]
     Indication: BREAST CANCER
     Dosage: LOADING DOSE, DATE OF LAST DOSE PRIOR TO SAE- 03/OCT/2012, DOSE: 378 MG
     Route: 042
     Dates: start: 20121003
  3. DOCETAXEL [Suspect]
     Indication: BREAST CANCER
     Dosage: DATE OF LAST DOSE PRIOR TO SAE- 04/OCT/2012
     Route: 042
     Dates: start: 20121004
  4. BICARBONATE [Concomitant]
     Route: 065
     Dates: start: 20121009, end: 20130328
  5. FLUCONAZOLE [Concomitant]
     Indication: APHTHOUS STOMATITIS
     Dosage: 500MG IN 700 MG
     Route: 065
     Dates: start: 20121009, end: 20121016
  6. ERYTHROMYCIN [Concomitant]
     Dosage: 2 FLASKS
     Route: 065
     Dates: start: 20121009, end: 20130719
  7. DESLORATADINE [Concomitant]
     Indication: PRURITUS
     Dosage: 15 TABLETS
     Route: 065
     Dates: start: 20121009
  8. DEXERYL (FRANCE) [Concomitant]
     Route: 065
     Dates: start: 20121027
  9. DEXERYL (FRANCE) [Concomitant]
     Dosage: ONE TUBE
     Route: 065
     Dates: start: 20121004, end: 20121012
  10. GRANOCYTE 34 [Concomitant]
     Route: 065
     Dates: start: 20121029, end: 20121102
  11. GRANOCYTE 34 [Concomitant]
     Indication: NEUTROPENIA
     Route: 065
     Dates: start: 20121007, end: 20121011
  12. GRANOCYTE 34 [Concomitant]
     Route: 065
     Dates: start: 20121213, end: 20121217
  13. PREDNISOLONE [Concomitant]
     Route: 065
     Dates: start: 20121230, end: 20130101
  14. POLARAMINE [Concomitant]
     Route: 065
     Dates: start: 201302, end: 20130304
  15. ATARAX (FRANCE) [Concomitant]
     Route: 065
     Dates: start: 20130304, end: 20130308
  16. LOCOID [Concomitant]
     Dosage: 6 APPLICATIONS
     Route: 065
     Dates: start: 20130305, end: 20130308
  17. TAMOXIFEN [Concomitant]
     Indication: BREAST CANCER
     Route: 065
     Dates: start: 20130528, end: 20130531
  18. TAMOXIFEN [Concomitant]
     Route: 065
     Dates: start: 20130930
  19. LEXOMIL [Concomitant]
     Indication: PANIC ATTACK
     Route: 065
     Dates: start: 20130624, end: 20130707
  20. LEXOMIL [Concomitant]
     Dosage: 1/2 TO 1/4 TABLET
     Route: 065
     Dates: start: 20130708
  21. OMEPRAZOLE [Concomitant]
     Route: 065
     Dates: start: 20130909, end: 20131009

REACTIONS (2)
  - Febrile bone marrow aplasia [Recovered/Resolved with Sequelae]
  - Neutrophil count [Recovered/Resolved]
